FAERS Safety Report 8143967-0 (Version None)
Quarter: 2012Q1

REPORT INFORMATION
  Report Type: 
  Country: None (occurrence: None)
  Receive Date: 20120217
  Receipt Date: 20120217
  Transmission Date: 20120608
  Serious: Yes (Hospitalization)
  Sender: FDA-Public Use
  Company Number: None

PATIENT
  Age: 84 Year
  Sex: Female
  Weight: 46.8 kg

DRUGS (3)
  1. PRADAXA [Suspect]
     Indication: EMBOLISM
     Dosage: 75 MG
     Route: 048
     Dates: start: 20110301, end: 20110624
  2. PRADAXA [Suspect]
     Indication: CEREBROVASCULAR ACCIDENT PROPHYLAXIS
     Dosage: 75 MG
     Route: 048
     Dates: start: 20110301, end: 20110624
  3. PRADAXA [Suspect]
     Indication: ATRIAL FIBRILLATION
     Dosage: 75 MG
     Route: 048
     Dates: start: 20110301, end: 20110624

REACTIONS (7)
  - BLOOD UREA INCREASED [None]
  - GASTRITIS [None]
  - GASTROINTESTINAL HAEMORRHAGE [None]
  - DIZZINESS [None]
  - ANGIODYSPLASIA [None]
  - HAEMORRHAGIC ANAEMIA [None]
  - PRESYNCOPE [None]
